FAERS Safety Report 9213833 (Version 2)
Quarter: 2013Q2

REPORT INFORMATION
  Report Type: Spontaneous
  Country: IT (occurrence: IT)
  Receive Date: 20130405
  Receipt Date: 20130514
  Transmission Date: 20140414
  Serious: Yes (Hospitalization)
  Sender: FDA-Public Use
  Company Number: IT-SANOFI-AVENTIS-2013SA033109

PATIENT
  Age: 76 Year
  Sex: Male

DRUGS (5)
  1. LASIX [Suspect]
     Indication: CARDIAC FAILURE
     Route: 048
     Dates: start: 20000101, end: 20130318
  2. SUGUAN M [Suspect]
     Indication: DIABETES MELLITUS
     Dosage: DOSE-400+2.5 MG DAILY
     Route: 048
     Dates: start: 20080101, end: 20130318
  3. COUMADIN [Concomitant]
     Indication: ATRIAL FIBRILLATION
     Route: 048
  4. NORVASC [Concomitant]
     Indication: HYPERTENSION
     Route: 048
  5. KARVEA [Concomitant]
     Indication: HYPERTENSION
     Route: 048

REACTIONS (3)
  - Metabolic acidosis [Recovered/Resolved]
  - Hypoglycaemia [Recovered/Resolved]
  - Renal failure acute [Recovered/Resolved]
